FAERS Safety Report 12975613 (Version 2)
Quarter: 2016Q4

REPORT INFORMATION
  Report Type: Spontaneous
  Country: IT (occurrence: IT)
  Receive Date: 20161125
  Receipt Date: 20161227
  Transmission Date: 20170207
  Serious: Yes (Other)
  Sender: FDA-Public Use
  Company Number: IT-JNJFOC-20161119745

PATIENT

DRUGS (3)
  1. RALTEGRAVIR. [Suspect]
     Active Substance: RALTEGRAVIR
     Indication: HIV INFECTION
     Route: 065
     Dates: start: 2009, end: 2014
  2. RITONAVIR. [Suspect]
     Active Substance: RITONAVIR
     Indication: HIV INFECTION
     Route: 065
     Dates: start: 2009, end: 2014
  3. DARUNAVIR [Suspect]
     Active Substance: DARUNAVIR
     Indication: HIV INFECTION
     Route: 048
     Dates: start: 2009, end: 2014

REACTIONS (7)
  - Hepatotoxicity [Unknown]
  - Gastrointestinal disorder [Unknown]
  - Lipids increased [Unknown]
  - Nephropathy toxic [Unknown]
  - Neurotoxicity [Unknown]
  - Virologic failure [Unknown]
  - Blood bilirubin increased [Unknown]
